FAERS Safety Report 4358225-X (Version None)
Quarter: 2004Q2

REPORT INFORMATION
  Report Type: 
  Country: None (occurrence: None)
  Receive Date: 20040513
  Receipt Date: 20040513
  Transmission Date: 20050107
  Serious: No
  Sender: FDA-Public Use
  Company Number: None

PATIENT
  Sex: Male
  Weight: 110 kg

DRUGS (2)
  1. SIMVASTATIN [Suspect]
     Indication: HYPERCHOLESTEROLAEMIA
     Dosage: 40 MG QHS ORAL
     Route: 048
     Dates: start: 20031113, end: 20040121
  2. GEMFIBROZIL [Suspect]
     Dosage: 600 MG BID ORAL
     Route: 048
     Dates: start: 20031113, end: 20040121

REACTIONS (2)
  - RENAL FAILURE [None]
  - RHABDOMYOLYSIS [None]
